FAERS Safety Report 4355002-0 (Version None)
Quarter: 2004Q2

REPORT INFORMATION
  Report Type: 
  Country: None (occurrence: None)
  Receive Date: 20040504
  Receipt Date: 20040415
  Transmission Date: 20050107
  Serious: Yes (Hospitalization, Other)
  Sender: FDA-Public Use
  Company Number: HQWYE473615APR04

PATIENT
  Age: 71 Year
  Sex: Male

DRUGS (2)
  1. ATIVAN [Suspect]
     Dosage: ORAL
     Route: 048
  2. SEREPAX (OXAZEPAM, UNSPEC) [Suspect]
     Dosage: ORAL
     Route: 048

REACTIONS (10)
  - ACOUSTIC NEUROMA [None]
  - AREFLEXIA [None]
  - BRADYCARDIA [None]
  - COMA [None]
  - DRUG SCREEN POSITIVE [None]
  - ELECTROENCEPHALOGRAM ABNORMAL [None]
  - HYPOTENSION [None]
  - HYPOVENTILATION [None]
  - INTENTIONAL MISUSE [None]
  - STUPOR [None]
